FAERS Safety Report 24318756 (Version 1)
Quarter: 2024Q3

REPORT INFORMATION
  Report Type: Report from Study
  Country: JP (occurrence: JP)
  Receive Date: 20240913
  Receipt Date: 20240913
  Transmission Date: 20241016
  Serious: Yes (Hospitalization)
  Sender: ABBVIE
  Company Number: JP-ABBVIE-5918809

PATIENT
  Age: 21 Year
  Sex: Male
  Weight: 52.7 kg

DRUGS (17)
  1. RISANKIZUMAB [Suspect]
     Active Substance: RISANKIZUMAB
     Indication: Crohn^s disease
     Route: 058
     Dates: start: 20240823
  2. RISANKIZUMAB [Suspect]
     Active Substance: RISANKIZUMAB
     Indication: Crohn^s disease
     Route: 042
     Dates: start: 20240527, end: 20240726
  3. FERINJECT [Concomitant]
     Active Substance: FERRIC CARBOXYMALTOSE
     Indication: Crohn^s disease
     Dosage: FREQ: ONCE? SOLUTION FOR INJECTION/INFUSION
     Route: 042
     Dates: start: 20240823, end: 20240823
  4. AMINO ACIDS\CARBOHYDRATES\MINERALS\SOYBEAN OIL\VITAMINS [Concomitant]
     Active Substance: AMINO ACIDS\CARBOHYDRATES\MINERALS\SOYBEAN OIL\VITAMINS
     Indication: Nutritional supplementation
     Dosage: COMBINATION POWDER
     Route: 048
     Dates: start: 20240830, end: 20240904
  5. RACOL-NF [Concomitant]
     Indication: Nutritional supplementation
     Dosage: LIQUID FOR ENTERAL USE
     Route: 048
     Dates: start: 20240831, end: 20240901
  6. RACOL-NF [Concomitant]
     Indication: Nutritional supplementation
     Route: 048
     Dates: start: 20240902, end: 20240903
  7. RACOL-NF [Concomitant]
     Indication: Nutritional supplementation
     Dosage: TIME INTERVAL: 0.33333333 DAYS
     Route: 048
     Dates: start: 20240904, end: 20240904
  8. RACOL-NF [Concomitant]
     Indication: Nutritional supplementation
     Dosage: TIME INTERVAL: 0.33333333 DAYS
     Route: 048
     Dates: start: 20240905, end: 20240906
  9. RACOL-NF [Concomitant]
     Indication: Nutritional supplementation
     Dosage: TIME INTERVAL: 0.33333333 DAYS
     Route: 048
     Dates: start: 20240907, end: 20240907
  10. RACOL-NF [Concomitant]
     Indication: Nutritional supplementation
     Dosage: TIME INTERVAL: 0.33333333 DAYS
     Route: 048
     Dates: start: 20240908
  11. SOLACET D [Concomitant]
     Indication: Nutritional supplementation
     Dosage: FREQ: CONTINUOUS
     Route: 042
     Dates: start: 20240827, end: 20240830
  12. SOLACET D [Concomitant]
     Indication: Nutritional supplementation
     Dosage: FREQ: CONTINUOUS
     Route: 042
     Dates: start: 20240903, end: 20240903
  13. SOLACET D [Concomitant]
     Indication: Nutritional supplementation
     Dosage: FREQ: CONTINUOUS
     Route: 042
     Dates: start: 20240905, end: 20240906
  14. ZINC ACETATE DIHYDRATE [Concomitant]
     Indication: Crohn^s disease
     Route: 048
     Dates: start: 20240622
  15. CIPROFLOXACIN [Concomitant]
     Active Substance: CIPROFLOXACIN
     Indication: Crohn^s disease
     Route: 048
     Dates: start: 20231205, end: 20240905
  16. FOLIC ACID [Concomitant]
     Active Substance: FOLIC ACID
     Indication: Crohn^s disease
     Dosage: DOSE UNIT: 1 TABLET
     Route: 048
     Dates: start: 20240129
  17. FERROUS SULFATE [Concomitant]
     Active Substance: FERROUS SULFATE
     Indication: Crohn^s disease
     Dosage: DOSE UNIT: 1 TABLET
     Route: 048
     Dates: start: 20240129

REACTIONS (1)
  - Device related bacteraemia [Not Recovered/Not Resolved]

NARRATIVE: CASE EVENT DATE: 20240905
